FAERS Safety Report 6379712-9 (Version None)
Quarter: 2009Q3

REPORT INFORMATION
  Report Type: 
  Country: None (occurrence: None)
  Receive Date: 20090928
  Receipt Date: 20090915
  Transmission Date: 20100115
  Serious: Yes (Hospitalization)
  Sender: FDA-Public Use
  Company Number: FR-AVENTIS-200913429FR

PATIENT
  Age: 85 Year
  Sex: Female
  Weight: 48 kg

DRUGS (13)
  1. TRIATEC                            /00885601/ [Suspect]
     Indication: DRUG USE FOR UNKNOWN INDICATION
     Route: 048
  2. LANTUS [Suspect]
     Route: 048
  3. NOVONORM [Suspect]
     Route: 048
     Dates: start: 20090703, end: 20090826
  4. MOPRAL [Suspect]
     Indication: DRUG USE FOR UNKNOWN INDICATION
     Route: 048
     Dates: start: 20090601
  5. TARDYFERON                         /00023503/ [Suspect]
     Indication: DRUG USE FOR UNKNOWN INDICATION
     Route: 048
     Dates: start: 20090701
  6. FORLAX [Suspect]
     Indication: DRUG USE FOR UNKNOWN INDICATION
  7. PARACETAMOL [Suspect]
     Indication: DRUG USE FOR UNKNOWN INDICATION
     Route: 048
  8. PLAVIX [Suspect]
     Indication: DRUG USE FOR UNKNOWN INDICATION
     Route: 048
  9. CALCIUM WITH VITAMIN D             /01233101/ [Suspect]
     Indication: DRUG USE FOR UNKNOWN INDICATION
     Route: 048
  10. CARTEOL                            /00853401/ [Concomitant]
     Indication: DRUG USE FOR UNKNOWN INDICATION
  11. CATACOL                            /00394202/ [Concomitant]
     Indication: DRUG USE FOR UNKNOWN INDICATION
  12. MYCOSTER                           /00619302/ [Concomitant]
     Indication: DRUG USE FOR UNKNOWN INDICATION
  13. ECONAZOLE NITRATE [Concomitant]
     Indication: DRUG USE FOR UNKNOWN INDICATION

REACTIONS (8)
  - BRONCHOALVEOLAR LAVAGE ABNORMAL [None]
  - CARDIAC FAILURE [None]
  - HYPERTHERMIA [None]
  - INFLAMMATION [None]
  - LUNG DISORDER [None]
  - PYREXIA [None]
  - STAPHYLOCOCCAL INFECTION [None]
  - SYSTEMIC INFLAMMATORY RESPONSE SYNDROME [None]
